FAERS Safety Report 5213012-5 (Version None)
Quarter: 2007Q1

REPORT INFORMATION
  Report Type: 
  Country: None (occurrence: None)
  Receive Date: 20070119
  Receipt Date: 20070110
  Transmission Date: 20070707
  Serious: Yes (Other)
  Sender: FDA-Public Use
  Company Number: 2007SE00137

PATIENT
  Age: 18635 Day
  Sex: Female
  Weight: 100 kg

DRUGS (1)
  1. MARCAINE [Suspect]
     Route: 037
     Dates: start: 20061128, end: 20061128

REACTIONS (1)
  - ANAESTHETIC COMPLICATION [None]
